FAERS Safety Report 4609150-8 (Version None)
Quarter: 2005Q1

REPORT INFORMATION
  Report Type: 
  Country: None (occurrence: None)
  Receive Date: 20050315
  Receipt Date: 20050311
  Transmission Date: 20050727
  Serious: Yes (Other)
  Sender: FDA-Public Use
  Company Number: GB-MERCK-0503GBR00105

PATIENT
  Age: 57 Year
  Sex: Male
  Weight: 70 kg

DRUGS (6)
  1. RAMIPRIL [Concomitant]
     Indication: BLOOD PRESSURE INCREASED
     Route: 048
     Dates: start: 20010501
  2. RAMIPRIL [Concomitant]
     Indication: MYOCARDIAL INFARCTION
     Route: 048
     Dates: start: 20010501
  3. BEZAFIBRATE [Concomitant]
     Route: 048
     Dates: end: 20050124
  4. ZETIA [Suspect]
     Indication: BLOOD CHOLESTEROL INCREASED
     Route: 048
     Dates: start: 20050124, end: 20050101
  5. ZETIA [Suspect]
     Route: 048
     Dates: start: 20050101, end: 20050215
  6. ASPIRIN [Concomitant]
     Indication: MYOCARDIAL INFARCTION
     Route: 048
     Dates: start: 20010101

REACTIONS (2)
  - ABDOMINAL PAIN [None]
  - SOMNOLENCE [None]
